FAERS Safety Report 6835214-4 (Version None)
Quarter: 2010Q3

REPORT INFORMATION
  Report Type: 
  Country: None (occurrence: None)
  Receive Date: 20100713
  Receipt Date: 20100705
  Transmission Date: 20110219
  Serious: Yes (Hospitalization)
  Sender: FDA-Public Use
  Company Number: IT-TEVA-240718ISR

PATIENT
  Sex: Female

DRUGS (8)
  1. FLUOROURACIL [Suspect]
     Indication: TONGUE NEOPLASM
     Route: 042
     Dates: start: 20091113, end: 20091113
  2. FLUOROURACIL [Suspect]
     Route: 042
     Dates: start: 20100121, end: 20100121
  3. CISPLATIN [Suspect]
     Indication: TONGUE NEOPLASM
     Route: 042
     Dates: start: 20091113, end: 20091113
  4. CISPLATIN [Suspect]
     Route: 042
     Dates: start: 20100121, end: 20100121
  5. DOCETAXEL [Suspect]
     Indication: TONGUE NEOPLASM
     Route: 042
     Dates: start: 20091113, end: 20091113
  6. LORAZEPAM [Concomitant]
     Route: 048
  7. ENALAPRIL W/HYDROCHLOROTHIAZIDE [Concomitant]
     Indication: HYPERTENSION
     Route: 048
  8. BISOPROLOL FUMARATE [Concomitant]
     Indication: HYPERTENSION
     Route: 048

REACTIONS (5)
  - ANAEMIA [None]
  - HYPERCALCAEMIA [None]
  - HYPERCREATININAEMIA [None]
  - MUCOSAL INFLAMMATION [None]
  - NEUTROPENIA [None]
